FAERS Safety Report 6695143-6 (Version None)
Quarter: 2010Q2

REPORT INFORMATION
  Report Type: 
  Country: None (occurrence: None)
  Receive Date: 20100423
  Receipt Date: 20100421
  Transmission Date: 20101027
  Serious: Yes (Death, Other)
  Sender: FDA-Public Use
  Company Number: PHHY2010IT23047

PATIENT
  Sex: Female

DRUGS (2)
  1. ZOMETA [Suspect]
     Indication: METASTASES TO BONE
     Dosage: 4 MG, UNK
     Route: 042
     Dates: start: 20060608, end: 20080320
  2. FASLODEX [Concomitant]
     Dosage: UNK
     Route: 042
     Dates: start: 20070112, end: 20090130

REACTIONS (2)
  - DEATH [None]
  - OSTEONECROSIS [None]
